FAERS Safety Report 9163354 (Version 4)
Quarter: 2013Q4

REPORT INFORMATION
  Report Type: Spontaneous
  Country: FI (occurrence: FI)
  Receive Date: 20130314
  Receipt Date: 20131112
  Transmission Date: 20140711
  Serious: Yes (Other)
  Sender: FDA-Public Use
  Company Number: FI-ROCHE-1200914

PATIENT
  Sex: Female

DRUGS (2)
  1. XOLAIR [Suspect]
     Indication: ASTHMA
     Dosage: 150 MG/ML
     Route: 065
     Dates: start: 200711
  2. XOLAIR [Suspect]
     Indication: ALLERGY TO ANIMAL

REACTIONS (4)
  - Anaemia [Unknown]
  - Bursitis [Unknown]
  - Osteoarthritis [Not Recovered/Not Resolved]
  - Contusion [Unknown]
